FAERS Safety Report 20220099 (Version 5)
Quarter: 2024Q3

REPORT INFORMATION
  Report Type: Spontaneous
  Country: US (occurrence: None)
  Receive Date: 20211222
  Receipt Date: 20240906
  Transmission Date: 20241017
  Serious: No
  Sender: DOMPE FARMACEUTICI
  Company Number: US-FARMAPROD-202112-2324

PATIENT
  Age: 69 Year
  Sex: Male
  Weight: 131.09 kg

DRUGS (42)
  1. OXERVATE [Suspect]
     Active Substance: CENEGERMIN-BKBJ
     Indication: Neurotrophic keratopathy
     Route: 047
     Dates: start: 20211201, end: 20220117
  2. OXERVATE [Suspect]
     Active Substance: CENEGERMIN-BKBJ
     Route: 047
     Dates: start: 20220615
  3. OXERVATE [Suspect]
     Active Substance: CENEGERMIN-BKBJ
     Route: 047
     Dates: start: 20220720, end: 20220914
  4. OXERVATE [Suspect]
     Active Substance: CENEGERMIN-BKBJ
     Route: 047
     Dates: start: 20221213, end: 20230213
  5. OXERVATE [Suspect]
     Active Substance: CENEGERMIN-BKBJ
     Route: 047
     Dates: start: 20230424, end: 20230622
  6. OXERVATE [Suspect]
     Active Substance: CENEGERMIN-BKBJ
     Route: 047
     Dates: start: 20230718
  7. SYSTANE (HYPROMELLOSE 2910 (4000 MPA.S)) [Concomitant]
     Active Substance: HYPROMELLOSE 2910 (4000 MPA.S)
     Dosage: 0.3%-0.4%
  8. REFRESH OPTIVE MEGA-3 [Concomitant]
     Active Substance: CARBOXYMETHYLCELLULOSE SODIUM\GLYCERIN\POLYSORBATE 80
  9. ZYRTEC [Concomitant]
     Active Substance: CETIRIZINE HYDROCHLORIDE
  10. LAMOTRIGINE [Concomitant]
     Active Substance: LAMOTRIGINE
  11. MORPHINE SULFATE [Concomitant]
     Active Substance: MORPHINE SULFATE
     Dosage: EXTENDED RELEASE
  12. SOTALOL [Concomitant]
     Active Substance: SOTALOL\SOTALOL HYDROCHLORIDE
  13. TRAZODONE HCL [Concomitant]
     Active Substance: TRAZODONE HYDROCHLORIDE
  14. FLUTICASONE PROPIONATE [Concomitant]
     Active Substance: FLUTICASONE PROPIONATE
     Dosage: SPRAY SUSPENSION
  15. LEVOTHYROXINE SODIUM [Concomitant]
     Active Substance: LEVOTHYROXINE SODIUM
  16. OMEPRAZOLE [Concomitant]
     Active Substance: OMEPRAZOLE
     Dosage: DELAYED RELEASE
  17. ASCORBIC ACID [Concomitant]
     Active Substance: ASCORBIC ACID
  18. ESCITALOPRAM OXALATE [Concomitant]
     Active Substance: ESCITALOPRAM OXALATE
  19. DOXYCYCLINE HYCLATE [Concomitant]
     Active Substance: DOXYCYCLINE HYCLATE
  20. FLUOROMETHOLONE [Concomitant]
     Active Substance: FLUOROMETHOLONE
  21. MOXIFLOXACIN [Concomitant]
     Active Substance: MOXIFLOXACIN
  22. LACTULOSE [Concomitant]
     Active Substance: LACTULOSE
     Dosage: 10 MG / 15 ML
  23. SOLIFENACIN SUCCINATE [Concomitant]
     Active Substance: SOLIFENACIN SUCCINATE
  24. BACITRACIN-POLYMYXIN [Concomitant]
     Dosage: 500-10 K / GRAM
  25. CYCLOPENTOLATE HYDROCHLORIDE [Concomitant]
     Active Substance: CYCLOPENTOLATE HYDROCHLORIDE
  26. SODIUM CHLORIDE [Concomitant]
     Active Substance: SODIUM CHLORIDE
     Dosage: VIAL
  27. PREDNISOLONE ACETATE [Concomitant]
     Active Substance: PREDNISOLONE ACETATE
  28. ZIRGAN [Concomitant]
     Active Substance: GANCICLOVIR
  29. WARFARIN SODIUM [Concomitant]
     Active Substance: WARFARIN SODIUM
  30. ALBUTEROL SULFATE [Concomitant]
     Active Substance: ALBUTEROL SULFATE
     Dosage: 2.5 MG / 3 ML VIAL-NEBULIZER
  31. SYMBICORT [Concomitant]
     Active Substance: BUDESONIDE\FORMOTEROL FUMARATE DIHYDRATE
     Dosage: 160 - 4.5 MCG HYDROFLUOROALKANE AEROSOL WITH ADAPTER
  32. CEFAZOLIN SODIUM [Concomitant]
     Active Substance: CEFAZOLIN SODIUM
     Dosage: VIAL
  33. TOBRAMYCIN [Concomitant]
     Active Substance: TOBRAMYCIN\TOBRAMYCIN SULFATE
  34. WARFARIN SODIUM [Concomitant]
     Active Substance: WARFARIN SODIUM
  35. ATROPINE SULFATE [Concomitant]
     Active Substance: ATROPINE SULFATE
  36. CARVEDILOL [Concomitant]
     Active Substance: CARVEDILOL
  37. CARVEDILOL [Concomitant]
     Active Substance: CARVEDILOL
  38. RESTASIS [Concomitant]
     Active Substance: CYCLOSPORINE
  39. CLONAZEPAM [Concomitant]
     Active Substance: CLONAZEPAM
  40. ZONISAMIDE [Concomitant]
     Active Substance: ZONISAMIDE
  41. REFRESH OPTIVE SENSITIVE [Concomitant]
     Active Substance: CARBOXYMETHYLCELLULOSE SODIUM\GLYCERIN
  42. ERYTHROMYCIN [Concomitant]
     Active Substance: ERYTHROMYCIN

REACTIONS (3)
  - Product administration error [Unknown]
  - Product dose omission issue [Unknown]
  - Illness [Not Recovered/Not Resolved]

NARRATIVE: CASE EVENT DATE: 20211201
